FAERS Safety Report 11870716 (Version 1)
Quarter: 2015Q4

REPORT INFORMATION
  Report Type: Spontaneous
  Country: US (occurrence: US)
  Receive Date: 20151228
  Receipt Date: 20151228
  Transmission Date: 20160305
  Serious: Yes (Other)
  Sender: FDA-Public Use
  Company Number: US-BAYER-2015-488767

PATIENT
  Age: 70 Year
  Sex: Female
  Weight: 68.27 kg

DRUGS (1)
  1. ALEVE [Suspect]
     Active Substance: NAPROXEN SODIUM
     Dosage: 2 DF, ONCE
     Route: 048

REACTIONS (5)
  - Generalised erythema [Recovered/Resolved]
  - Erythema [Recovered/Resolved]
  - Cardiac arrest [Recovered/Resolved]
  - Pruritus [Recovered/Resolved]
  - Blood pressure immeasurable [Recovered/Resolved]

NARRATIVE: CASE EVENT DATE: 201011
